FAERS Safety Report 7906295-1 (Version None)
Quarter: 2011Q4

REPORT INFORMATION
  Report Type: 
  Country: None (occurrence: None)
  Receive Date: 20111109
  Receipt Date: 20111109
  Transmission Date: 20120403
  Serious: Yes (Disabling, Other)
  Sender: FDA-Public Use
  Company Number: None

PATIENT
  Sex: Female
  Weight: 76.2043 kg

DRUGS (1)
  1. REBIF [Suspect]
     Indication: MULTIPLE SCLEROSIS
     Dosage: 44 MCG 3 X WEEK
     Dates: start: 20110320, end: 20110428

REACTIONS (6)
  - CONDITION AGGRAVATED [None]
  - POISONING [None]
  - MULTIPLE SCLEROSIS [None]
  - WHEELCHAIR USER [None]
  - FEELING ABNORMAL [None]
  - PARAESTHESIA [None]
